FAERS Safety Report 17090743 (Version 1)
Quarter: 2019Q4

REPORT INFORMATION
  Report Type: Spontaneous
  Country: US (occurrence: US)
  Receive Date: 20191129
  Receipt Date: 20191129
  Transmission Date: 20200122
  Serious: No
  Sender: FDA-Public Use
  Company Number: US-EMCURE PHARMACEUTICALS LTD-2019-EPL-0738

PATIENT
  Age: 77 Year
  Sex: Female
  Weight: 66.67 kg

DRUGS (9)
  1. METHENAMINE [Concomitant]
     Active Substance: METHENAMINE
  2. VITAMIN C [Concomitant]
     Active Substance: ASCORBIC ACID
  3. RAMIPRIL. [Concomitant]
     Active Substance: RAMIPRIL
  4. METOPROLOL. [Concomitant]
     Active Substance: METOPROLOL
  5. PLAVIX [Concomitant]
     Active Substance: CLOPIDOGREL BISULFATE
  6. ASPIRIN. [Concomitant]
     Active Substance: ASPIRIN
  7. SYNTHROID [Concomitant]
     Active Substance: LEVOTHYROXINE SODIUM
  8. HYDRALAZINE HYDROCHLORIDE. [Suspect]
     Active Substance: HYDRALAZINE HYDROCHLORIDE
     Indication: HYPERTENSION
     Dosage: 10 MG, 2X/DAY
     Route: 048
     Dates: start: 201807, end: 2019
  9. ATORVASTATIN [Concomitant]
     Active Substance: ATORVASTATIN

REACTIONS (1)
  - Drug ineffective [Recovered/Resolved]

NARRATIVE: CASE EVENT DATE: 201807
